FAERS Safety Report 13707400 (Version 3)
Quarter: 2017Q3

REPORT INFORMATION
  Report Type: Spontaneous
  Country: JP (occurrence: JP)
  Receive Date: 20170630
  Receipt Date: 20170810
  Transmission Date: 20171127
  Serious: Yes (Hospitalization, Other)
  Sender: FDA-Public Use
  Company Number: JP-JNJFOC-20170612849

PATIENT
  Age: 82 Year
  Sex: Female
  Weight: 51.9 kg

DRUGS (7)
  1. XARELTO [Suspect]
     Active Substance: RIVAROXABAN
     Indication: ATRIAL FIBRILLATION
     Route: 048
     Dates: start: 20150207, end: 20160819
  2. CANDESARTAN. [Concomitant]
     Active Substance: CANDESARTAN
     Indication: HYPERTENSION
     Route: 048
     Dates: start: 20090605
  3. FEXOFENADINE HYDROCHLORIDE. [Concomitant]
     Active Substance: FEXOFENADINE HYDROCHLORIDE
     Indication: RHINITIS ALLERGIC
     Route: 048
     Dates: start: 20120130
  4. HALCION [Concomitant]
     Active Substance: TRIAZOLAM
     Indication: INSOMNIA
     Route: 048
     Dates: start: 20090605
  5. XARELTO [Suspect]
     Active Substance: RIVAROXABAN
     Indication: ATRIAL FIBRILLATION
     Route: 048
     Dates: start: 20160820
  6. CEPHADOL [Concomitant]
     Active Substance: DIPHENIDOL HYDROCHLORIDE
     Indication: DIZZINESS
     Route: 048
     Dates: start: 20150502
  7. RABEPRAZOLE [Concomitant]
     Active Substance: RABEPRAZOLE
     Indication: GASTROOESOPHAGEAL REFLUX DISEASE
     Route: 048
     Dates: start: 20160820

REACTIONS (2)
  - Anaemia [Unknown]
  - Lower gastrointestinal haemorrhage [Not Recovered/Not Resolved]

NARRATIVE: CASE EVENT DATE: 20170518
